FAERS Safety Report 9028100 (Version 2)
Quarter: 2013Q2

REPORT INFORMATION
  Report Type: Spontaneous
  Country: BR (occurrence: BR)
  Receive Date: 20130123
  Receipt Date: 20130401
  Transmission Date: 20140414
  Serious: Yes (Other)
  Sender: FDA-Public Use
  Company Number: PHHY2013BR005465

PATIENT
  Sex: Female
  Weight: 65 kg

DRUGS (6)
  1. EXJADE [Suspect]
     Dosage: 02 DF, A DAY
     Route: 048
     Dates: start: 2002, end: 2012
  2. HYDREA [Concomitant]
     Indication: BLOOD IRON DECREASED
     Dosage: 02 DF, A DAY
     Route: 048
     Dates: start: 2002, end: 201302
  3. NIFEDIPINE [Concomitant]
     Indication: HYPERTENSION
     Dosage: 10 MG, BID
     Route: 048
  4. ATENOLOL [Concomitant]
  5. CLORANA [Concomitant]
     Indication: HYPERTENSION
     Dosage: 25 MG, HALF TABLET, A DAY
     Route: 048
  6. ENDOFOLIN [Concomitant]
     Indication: SICKLE CELL ANAEMIA
     Dosage: 05 MG, A DAY
     Route: 048

REACTIONS (7)
  - Hypertension [Recovered/Resolved]
  - Necrosis [Unknown]
  - Nail discolouration [Unknown]
  - Dysstasia [Unknown]
  - Diarrhoea [Unknown]
  - Vomiting [Unknown]
  - Blood iron increased [Unknown]
